FAERS Safety Report 7302164 (Version 2)
Quarter: 2014Q3

REPORT INFORMATION
  Report Type: Spontaneous
  Country: US (occurrence: None)
  Receive Date: 20100212
  Receipt Date: 20140822
  Transmission Date: 20150326
  Serious: Yes (Other)
  Sender: FDA-Public Use
  Company Number: 2010S1000577

PATIENT
  Age: 64 Year
  Sex: Female

DRUGS (4)
  1. SODIUM PHOSPHATE [Suspect]
     Active Substance: SODIUM PHOSPHATE
     Indication: COLONOSCOPY
     Dosage: 90 ML, TOTAL, PO
     Route: 048
     Dates: start: 20030506, end: 20030506
  2. PREMARIN(ESTROGENS CONJUGATED) [Concomitant]
  3. HYDROCHLOROTHIAZIDE(HYDROCHLOROTHIAZIDE) [Concomitant]
  4. DIOVAN [Concomitant]
     Active Substance: VALSARTAN

REACTIONS (16)
  - Paraesthesia [None]
  - Hypocalcaemia [None]
  - Hypoaesthesia [None]
  - Nausea [None]
  - Renal disorder [None]
  - Blood pressure increased [None]
  - Renal failure acute [None]
  - Asthenia [None]
  - Renal failure chronic [None]
  - Dizziness [None]
  - Nephropathy [None]
  - Fatigue [None]
  - Dehydration [None]
  - Hypokalaemia [None]
  - Anaemia [None]
  - Electrolyte imbalance [None]

NARRATIVE: CASE EVENT DATE: 20030508
